FAERS Safety Report 21080576 (Version 1)
Quarter: 2022Q3

REPORT INFORMATION
  Report Type: Spontaneous
  Country: US (occurrence: US)
  Receive Date: 20220714
  Receipt Date: 20220714
  Transmission Date: 20221026
  Serious: No
  Sender: FDA-Public Use
  Company Number: US-RECKITT BENCKISER HEALTHCARE INT LIMITED-RB-081068-2022

PATIENT
  Age: 59 Year
  Sex: Male

DRUGS (1)
  1. MUCINEX DM [Suspect]
     Active Substance: DEXTROMETHORPHAN HYDROBROMIDE\GUAIFENESIN
     Indication: Respiratory tract congestion
     Dosage: 1 DOSAGE FORM, QD, BEFORE BED WITH FULL GLASS OF WATER
     Route: 048

REACTIONS (2)
  - Drug effective for unapproved indication [Unknown]
  - Diarrhoea [Unknown]
